FAERS Safety Report 20608220 (Version 1)
Quarter: 2022Q1

REPORT INFORMATION
  Report Type: Spontaneous
  Country: US (occurrence: None)
  Receive Date: 20220317
  Receipt Date: 20220317
  Transmission Date: 20220424
  Serious: No
  Sender: FDA-Public Use
  Company Number: None

PATIENT
  Sex: Female

DRUGS (1)
  1. FORTEO [Suspect]
     Active Substance: TERIPARATIDE
     Indication: Senile osteoporosis
     Dosage: OTHER QUANTITY : 20MCG;?FREQUENCY : DAILY;?
     Route: 058
     Dates: start: 202201

REACTIONS (3)
  - Drug dose omission by device [None]
  - Stomatitis [None]
  - Bone pain [None]
